FAERS Safety Report 5886436-0 (Version None)
Quarter: 2008Q4

REPORT INFORMATION
  Report Type: 
  Country: None (occurrence: None)
  Receive Date: 20080917
  Receipt Date: 20080910
  Transmission Date: 20090506
  Serious: Yes (Hospitalization)
  Sender: FDA-Public Use
  Company Number: FR-ABBOTT-08P-056-0473134-00

PATIENT
  Sex: Male
  Weight: 110 kg

DRUGS (3)
  1. RITONAVIR SOFT GELATIN CAPSULES [Suspect]
     Indication: HIV INFECTION
     Route: 048
     Dates: start: 20041108
  2. ETRAVIRINE [Suspect]
     Indication: HIV INFECTION
     Route: 048
     Dates: start: 20060805
  3. TMC 114 [Suspect]
     Indication: HIV INFECTION
     Route: 048
     Dates: start: 20060805

REACTIONS (1)
  - OSTEONECROSIS [None]
